FAERS Safety Report 7446291-4 (Version None)
Quarter: 2011Q2

REPORT INFORMATION
  Report Type: 
  Country: None (occurrence: None)
  Receive Date: 20110429
  Receipt Date: 20100803
  Transmission Date: 20111010
  Serious: No
  Sender: FDA-Public Use
  Company Number: US-ASTRAZENECA-2010SE23712

PATIENT
  Age: 55 Year
  Sex: Male
  Weight: 93 kg

DRUGS (4)
  1. NEXIUM [Suspect]
     Indication: GASTROOESOPHAGEAL REFLUX DISEASE
     Route: 048
     Dates: start: 20010101, end: 20060101
  2. NEXIUM [Suspect]
     Route: 048
     Dates: start: 20060101, end: 20100501
  3. SYMBICORT [Concomitant]
     Indication: EMPHYSEMA
  4. COMBIVENT [Concomitant]

REACTIONS (3)
  - CHEST PAIN [None]
  - VOCAL CORD DISORDER [None]
  - DRUG INEFFECTIVE [None]
